FAERS Safety Report 19589553 (Version 2)
Quarter: 2021Q3

REPORT INFORMATION
  Report Type: Spontaneous
  Country: US (occurrence: US)
  Receive Date: 20210721
  Receipt Date: 20210728
  Transmission Date: 20211014
  Serious: No
  Sender: FDA-Public Use
  Company Number: US-BAYER-2021-180298

PATIENT
  Age: 9 Year
  Sex: Male

DRUGS (1)
  1. KOGENATE FS [Suspect]
     Active Substance: ANTIHEMOPHILIC FACTOR, HUMAN RECOMBINANT
     Dosage: 700?900 UN
     Route: 042

REACTIONS (3)
  - Lip injury [None]
  - Skin abrasion [None]
  - Accident [None]

NARRATIVE: CASE EVENT DATE: 20210717
